FAERS Safety Report 10640224 (Version 1)
Quarter: 2014Q4

REPORT INFORMATION
  Report Type: Spontaneous
  Country: US (occurrence: None)
  Receive Date: 20141208
  Receipt Date: 20141208
  Transmission Date: 20150529
  Serious: No
  Sender: FDA-Public Use
  Company Number: None

PATIENT
  Age: 74 Year
  Sex: Male
  Weight: 61.24 kg

DRUGS (1)
  1. COLGATE SENSITIVE MULTIPROTECTION [Suspect]
     Active Substance: POTASSIUM NITRATE\SODIUM FLUORIDE
     Indication: DENTAL CARE
     Dates: start: 20141124, end: 20141203

REACTIONS (3)
  - Swelling face [None]
  - Product physical consistency issue [None]
  - Product container seal issue [None]

NARRATIVE: CASE EVENT DATE: 20141203
